FAERS Safety Report 11805792 (Version 1)
Quarter: 2015Q4

REPORT INFORMATION
  Report Type: Report from Study
  Country: BR (occurrence: BR)
  Receive Date: 20151207
  Receipt Date: 20151207
  Transmission Date: 20160305
  Serious: Yes (Death, Hospitalization, Disabling)
  Sender: FDA-Public Use
  Company Number: BR-ABBVIE-15K-020-1513972-00

PATIENT
  Sex: Female

DRUGS (1)
  1. HUMIRA [Suspect]
     Active Substance: ADALIMUMAB
     Indication: RHEUMATOID ARTHRITIS
     Route: 058
     Dates: start: 20081203

REACTIONS (6)
  - Activities of daily living impaired [Unknown]
  - Rheumatic disorder [Unknown]
  - Eating disorder [Fatal]
  - Weight decreased [Fatal]
  - Gastric disorder [Fatal]
  - Hypoglycaemia [Fatal]
